FAERS Safety Report 8991339 (Version 1)
Quarter: 2012Q4

REPORT INFORMATION
  Report Type: 
  Country: DE (occurrence: DE)
  Receive Date: 20121230
  Receipt Date: 20121230
  Transmission Date: 20130627
  Serious: Yes (Hospitalization)
  Sender: FDA-Public Use
  Company Number: DE-ALEXION PHARMACEUTICALS INC.-A201202459

PATIENT

DRUGS (3)
  1. SOLIRIS 300MG [Suspect]
     Indication: HAEMOLYTIC URAEMIC SYNDROME
     Dosage: 900 mg, UNK
     Route: 042
     Dates: start: 20121113, end: 20121204
  2. SOLIRIS 300MG [Suspect]
     Dosage: 1200 mg, UNK
     Route: 042
     Dates: start: 20121211
  3. PROGRAF [Concomitant]

REACTIONS (3)
  - Blood lactate dehydrogenase increased [Unknown]
  - Blood creatinine increased [Unknown]
  - Thrombocytopenia [Unknown]
